FAERS Safety Report 14684115 (Version 2)
Quarter: 2018Q2

REPORT INFORMATION
  Report Type: Report from Study
  Country: MX (occurrence: MX)
  Receive Date: 20180327
  Receipt Date: 20180410
  Transmission Date: 20180711
  Serious: Yes (Disabling)
  Sender: FDA-Public Use
  Company Number: PHHY2018MX047390

PATIENT
  Age: 63 Year
  Sex: Female

DRUGS (6)
  1. MICARID PLUS [Concomitant]
     Indication: HYPERTENSION
     Dosage: 1 DF, QD
     Route: 048
  2. LACIPIL [Concomitant]
     Active Substance: LACIDIPINE
     Indication: HYPERTENSION
     Dosage: 1 DF, QD (AT NIGHT)
     Route: 048
  3. ROSUVASTATIN. [Suspect]
     Active Substance: ROSUVASTATIN
     Indication: BLOOD CHOLESTEROL INCREASED
     Dosage: 1 DF, QD
     Route: 048
  4. GALVUS MET [Suspect]
     Active Substance: METFORMIN HYDROCHLORIDE\VILDAGLIPTIN
     Indication: DIABETES MELLITUS
     Dosage: 1 DF (500/50 MG), QD (AT MIDDAY)
     Route: 048
  5. GALVUS MET [Suspect]
     Active Substance: METFORMIN HYDROCHLORIDE\VILDAGLIPTIN
     Dosage: 1 DF (850/50 MG), QD
     Route: 048
  6. GALVUS MET [Suspect]
     Active Substance: METFORMIN HYDROCHLORIDE\VILDAGLIPTIN
     Dosage: 1.5 DF (850/50 MG), 1/2 TABLET AT NOON AND 1 TABLET IN THE NIGHT
     Route: 048

REACTIONS (10)
  - Drug prescribing error [Unknown]
  - Bronchitis [Recovered/Resolved]
  - Blood cholesterol increased [Unknown]
  - Blood glucose increased [Not Recovered/Not Resolved]
  - Wrong technique in product usage process [Unknown]
  - Malaise [Unknown]
  - Bronchitis [Recovered/Resolved]
  - Lumbar hernia [Not Recovered/Not Resolved]
  - Asthenia [Unknown]
  - Menopause [Not Recovered/Not Resolved]

NARRATIVE: CASE EVENT DATE: 201411
